FAERS Safety Report 15764942 (Version 2)
Quarter: 2018Q4

REPORT INFORMATION
  Report Type: Report from Study
  Country: TR (occurrence: TR)
  Receive Date: 20181227
  Receipt Date: 20181228
  Transmission Date: 20190205
  Serious: Yes (Death, Hospitalization)
  Sender: FDA-Public Use
  Company Number: PHHY2018TR195539

PATIENT
  Age: 41 Year
  Sex: Female

DRUGS (3)
  1. LEE011 [Suspect]
     Active Substance: RIBOCICLIB
     Indication: NEOPLASM
     Dosage: 600 MG, QD
     Route: 048
     Dates: start: 20180329, end: 20181113
  2. LEE011 [Suspect]
     Active Substance: RIBOCICLIB
     Indication: BREAST CANCER METASTATIC
  3. LEE011 [Suspect]
     Active Substance: RIBOCICLIB
     Indication: LYMPHOMA

REACTIONS (4)
  - Breast cancer metastatic [Fatal]
  - Metastases to liver [Fatal]
  - Metastases to bone [Fatal]
  - Malignant neoplasm progression [Fatal]

NARRATIVE: CASE EVENT DATE: 20181113
